FAERS Safety Report 25221369 (Version 1)
Quarter: 2025Q2

REPORT INFORMATION
  Report Type: Spontaneous
  Country: US (occurrence: US)
  Receive Date: 20250421
  Receipt Date: 20250421
  Transmission Date: 20250717
  Serious: Yes (Other)
  Sender: PFIZER
  Company Number: US-PFIZER INC-PV202500045496

PATIENT
  Age: 46 Year
  Sex: Female

DRUGS (2)
  1. ADALIMUMAB [Suspect]
     Active Substance: ADALIMUMAB
     Indication: Crohn^s disease
  2. ADALIMUMAB [Suspect]
     Active Substance: ADALIMUMAB
     Dosage: 40 MG, WEEKLY(INCREASED IN SEPTEMBER 2022)
     Dates: start: 202209

REACTIONS (4)
  - Autoimmune hepatitis [Recovered/Resolved]
  - Hepatic fibrosis [Recovered/Resolved]
  - Steatohepatitis [Recovered/Resolved]
  - Off label use [Unknown]
